FAERS Safety Report 4360266-3 (Version None)
Quarter: 2004Q2

REPORT INFORMATION
  Report Type: 
  Country: None (occurrence: None)
  Receive Date: 20040514
  Receipt Date: 20040507
  Transmission Date: 20050107
  Serious: Yes (Hospitalization)
  Sender: FDA-Public Use
  Company Number: 2004UW09559

PATIENT
  Age: 64 Year
  Sex: Female

DRUGS (9)
  1. IRESSA [Suspect]
     Indication: LUNG NEOPLASM MALIGNANT
     Dosage: 250 MG DAILY PO
     Route: 048
  2. COUMADIN [Concomitant]
  3. POTASSIUM [Concomitant]
  4. LASIX [Concomitant]
  5. OXYCONTIN [Concomitant]
  6. ENDOCET [Concomitant]
  7. OXA  B12 INJECTION [Concomitant]
  8. EFFEXOR [Concomitant]
  9. CALCIUM [Concomitant]

REACTIONS (4)
  - ASTHENIA [None]
  - HAEMOPTYSIS [None]
  - HOT FLUSH [None]
  - NAUSEA [None]
